FAERS Safety Report 19840297 (Version 7)
Quarter: 2022Q2

REPORT INFORMATION
  Report Type: Report from Study
  Country: US (occurrence: US)
  Receive Date: 20210915
  Receipt Date: 20220517
  Transmission Date: 20220721
  Serious: No
  Sender: FDA-Public Use
  Company Number: US-GLAXOSMITHKLINE-US2021AMR184831

PATIENT

DRUGS (1)
  1. BELANTAMAB MAFODOTIN [Suspect]
     Active Substance: BELANTAMAB MAFODOTIN
     Indication: Product used for unknown indication
     Dosage: UNK
     Dates: start: 20210730

REACTIONS (4)
  - Ocular toxicity [Recovered/Resolved]
  - Night blindness [Recovered/Resolved]
  - Visual acuity reduced [Recovered/Resolved]
  - Keratopathy [Recovered/Resolved]

NARRATIVE: CASE EVENT DATE: 20210831
